FAERS Safety Report 7272716-3 (Version None)
Quarter: 2011Q1

REPORT INFORMATION
  Report Type: 
  Country: None (occurrence: None)
  Receive Date: 20110203
  Receipt Date: 20110131
  Transmission Date: 20110831
  Serious: Yes (Other)
  Sender: FDA-Public Use
  Company Number: US-PFIZER INC-2010090279

PATIENT
  Sex: Male
  Weight: 95 kg

DRUGS (3)
  1. LYRICA [Suspect]
     Dosage: UNK, 3X/DAY
     Route: 048
     Dates: start: 20070101, end: 20090101
  2. LYRICA [Suspect]
     Indication: NERVE INJURY
     Dosage: UNK
     Route: 048
     Dates: start: 20080101, end: 20081201
  3. METFORMIN [Concomitant]
     Dosage: 500 MG, 2X/DAY

REACTIONS (8)
  - DRUG DEPENDENCE [None]
  - PRURITUS [None]
  - URTICARIA [None]
  - DIZZINESS [None]
  - HYPERSENSITIVITY [None]
  - DEPRESSION [None]
  - RASH [None]
  - SWELLING [None]
